FAERS Safety Report 16203561 (Version 3)
Quarter: 2019Q2

REPORT INFORMATION
  Report Type: Spontaneous
  Country: CA (occurrence: CA)
  Receive Date: 20190416
  Receipt Date: 20190513
  Transmission Date: 20190711
  Serious: Yes (Life-Threatening, Other)
  Sender: FDA-Public Use
  Company Number: CA-PFIZER INC-2019155182

PATIENT
  Age: 78 Year
  Sex: Male

DRUGS (5)
  1. DALTEPARIN [Concomitant]
     Active Substance: DALTEPARIN
     Indication: THROMBOSIS PROPHYLAXIS
     Dosage: UNK (POSTOPERATIVELY)
  2. WARFARIN [Concomitant]
     Active Substance: WARFARIN
     Dosage: 3 MG, UNK (3 MG X 2)
  3. HEPARIN SODIUM. [Suspect]
     Active Substance: HEPARIN SODIUM
     Indication: CARDIAC OPERATION
     Dosage: UNK (INTRAOPERATIVELY)
  4. WARFARIN [Concomitant]
     Active Substance: WARFARIN
     Dosage: UNK (RESTARTED ON POD28)
  5. HEPARIN SODIUM. [Suspect]
     Active Substance: HEPARIN SODIUM
     Dosage: UNK (THERAPEUTIC-DOSE UNFRACTIONATED HEPARIN (UFH))

REACTIONS (4)
  - Disseminated intravascular coagulation [Unknown]
  - Heparin-induced thrombocytopenia [Recovered/Resolved]
  - Deep vein thrombosis [Unknown]
  - Gangrene [Unknown]
